FAERS Safety Report 20232567 (Version 4)
Quarter: 2022Q1

REPORT INFORMATION
  Report Type: Spontaneous
  Country: US (occurrence: US)
  Receive Date: 20211227
  Receipt Date: 20220315
  Transmission Date: 20220423
  Serious: No
  Sender: FDA-Public Use
  Company Number: US-GLAXOSMITHKLINE-US2021AMR262519

PATIENT
  Sex: Female

DRUGS (2)
  1. ZEJULA [Suspect]
     Active Substance: NIRAPARIB
     Indication: Fallopian tube cancer
     Dosage: 200 MG, QD
     Dates: end: 202201
  2. ZEJULA [Suspect]
     Active Substance: NIRAPARIB
     Dosage: 2 DF
     Dates: start: 202201

REACTIONS (8)
  - Abdominal discomfort [Unknown]
  - Vomiting [Unknown]
  - Insomnia [Unknown]
  - Fatigue [Unknown]
  - Platelet count decreased [Unknown]
  - Malaise [Unknown]
  - Nausea [Unknown]
  - Product dose omission in error [Unknown]
